FAERS Safety Report 9694046 (Version 4)
Quarter: 2016Q3

REPORT INFORMATION
  Report Type: Spontaneous
  Country: US (occurrence: US)
  Receive Date: 20131118
  Receipt Date: 20160718
  Transmission Date: 20161109
  Serious: Yes (Other)
  Sender: FDA-Public Use
  Company Number: US-PFIZER INC-2013226500

PATIENT
  Age: 61 Year
  Sex: Female
  Weight: 57 kg

DRUGS (11)
  1. GELFOAM [Suspect]
     Active Substance: GELATIN\THROMBIN HUMAN
     Indication: FACIAL NERVE DISORDER
     Dosage: UNK
     Route: 001
     Dates: start: 20130307
  2. GELFOAM [Suspect]
     Active Substance: GELATIN\THROMBIN HUMAN
     Indication: EAR OPERATION
  3. GELFOAM [Suspect]
     Active Substance: GELATIN\THROMBIN HUMAN
     Indication: TYMPANOPLASTY
  4. LEVOTHYROXINE. [Concomitant]
     Active Substance: LEVOTHYROXINE
     Indication: AUTOIMMUNE THYROIDITIS
     Dosage: 0.5MG /ALTERNATE DAYS
  5. XANAX [Concomitant]
     Active Substance: ALPRAZOLAM
     Indication: ANXIETY
     Dosage: 0.25 MG, DAILY (3 TABLETS AT NIGHT ONLY)
  6. NEOMYCIN SULFATE. [Suspect]
     Active Substance: NEOMYCIN SULFATE
     Dosage: UNK
     Dates: start: 2013
  7. FLOXIN [Interacting]
     Active Substance: OFLOXACIN
     Dosage: UNK
     Dates: start: 201303
  8. PREDNISONE. [Interacting]
     Active Substance: PREDNISONE
     Dosage: 60 MG, DAILY
     Dates: start: 20130311, end: 201303
  9. LEVOTHYROXINE. [Concomitant]
     Active Substance: LEVOTHYROXINE
     Indication: THYROID DISORDER
     Dosage: 0.75MG , ALTERNATE DAYS
     Dates: start: 1999
  10. XANAX [Concomitant]
     Active Substance: ALPRAZOLAM
     Indication: PANIC ATTACK
  11. FLOXIN [Interacting]
     Active Substance: OFLOXACIN
     Indication: PROPHYLAXIS
     Dosage: UNK
     Route: 001
     Dates: start: 20130307

REACTIONS (47)
  - Intentional device misuse [Unknown]
  - Feeling abnormal [Unknown]
  - Feeling abnormal [Not Recovered/Not Resolved]
  - Speech disorder [Not Recovered/Not Resolved]
  - Pain [Not Recovered/Not Resolved]
  - Tinnitus [Not Recovered/Not Resolved]
  - Rosacea [Not Recovered/Not Resolved]
  - Lipoma [Not Recovered/Not Resolved]
  - Hyperacusis [Not Recovered/Not Resolved]
  - Dysphagia [Not Recovered/Not Resolved]
  - Dry eye [Not Recovered/Not Resolved]
  - Erythema [Not Recovered/Not Resolved]
  - Drug interaction [Unknown]
  - Condition aggravated [Not Recovered/Not Resolved]
  - Antinuclear antibody positive [Recovered/Resolved]
  - Burning sensation [Not Recovered/Not Resolved]
  - Hypoaesthesia [Not Recovered/Not Resolved]
  - Abdominal pain upper [Not Recovered/Not Resolved]
  - Deafness unilateral [Not Recovered/Not Resolved]
  - Panic attack [Not Recovered/Not Resolved]
  - Impaired work ability [Not Recovered/Not Resolved]
  - Tendon disorder [Not Recovered/Not Resolved]
  - Irritable bowel syndrome [Not Recovered/Not Resolved]
  - Optic neuritis [Not Recovered/Not Resolved]
  - Chest discomfort [Recovered/Resolved]
  - Memory impairment [Not Recovered/Not Resolved]
  - Hypoaesthesia [Unknown]
  - Bone pain [Not Recovered/Not Resolved]
  - Tendon pain [Not Recovered/Not Resolved]
  - Synovial cyst [Not Recovered/Not Resolved]
  - Cataract [Unknown]
  - Drug hypersensitivity [Not Recovered/Not Resolved]
  - Neuropathy peripheral [Not Recovered/Not Resolved]
  - Dry mouth [Not Recovered/Not Resolved]
  - Tongue discomfort [Not Recovered/Not Resolved]
  - Acne [Not Recovered/Not Resolved]
  - Myalgia [Not Recovered/Not Resolved]
  - Blindness [Not Recovered/Not Resolved]
  - Antineutrophil cytoplasmic antibody positive [Recovered/Resolved]
  - Pain of skin [Not Recovered/Not Resolved]
  - Tachycardia [Recovered/Resolved]
  - Malaise [Unknown]
  - Arthralgia [Not Recovered/Not Resolved]
  - Headache [Not Recovered/Not Resolved]
  - Paraesthesia [Not Recovered/Not Resolved]
  - Nasal cyst [Not Recovered/Not Resolved]
  - Arthralgia [Not Recovered/Not Resolved]

NARRATIVE: CASE EVENT DATE: 2013
